FAERS Safety Report 21192195 (Version 1)
Quarter: 2022Q3

REPORT INFORMATION
  Report Type: Spontaneous
  Country: CN (occurrence: CN)
  Receive Date: 20220809
  Receipt Date: 20220809
  Transmission Date: 20221027
  Serious: Yes (Life-Threatening, Hospitalization, Other)
  Sender: FDA-Public Use
  Company Number: CN-BRACCO-2022CN03055

PATIENT
  Age: 32 Year
  Sex: Male

DRUGS (3)
  1. SULFUR HEXAFLUORIDE [Suspect]
     Active Substance: SULFUR HEXAFLUORIDE
     Indication: Ultrasound scan
     Dosage: SINGLE
     Route: 042
     Dates: start: 20220721, end: 20220721
  2. SULFUR HEXAFLUORIDE [Suspect]
     Active Substance: SULFUR HEXAFLUORIDE
     Indication: Ultrasound scan
     Dosage: SINGLE
     Route: 042
     Dates: start: 20220721, end: 20220721
  3. SULFUR HEXAFLUORIDE [Suspect]
     Active Substance: SULFUR HEXAFLUORIDE
     Indication: Ultrasound scan
     Dosage: SINGLE
     Route: 042
     Dates: start: 20220721, end: 20220721

REACTIONS (6)
  - Heart rate increased [Recovering/Resolving]
  - Dyspnoea [Recovering/Resolving]
  - Anaphylactic shock [Recovering/Resolving]
  - Cardio-respiratory arrest [Recovering/Resolving]
  - Ventricular fibrillation [Recovering/Resolving]
  - Hypoxic-ischaemic encephalopathy [Recovering/Resolving]

NARRATIVE: CASE EVENT DATE: 20220721
